FAERS Safety Report 8017088 (Version 3)
Quarter: 2019Q4

REPORT INFORMATION
  Report Type: Report from Study
  Country: US (occurrence: US)
  Receive Date: 20110630
  Receipt Date: 20191231
  Transmission Date: 20200122
  Serious: Yes (Death, Life-Threatening, Hospitalization, Other)
  Sender: FDA-Public Use
  Company Number: US-ROCHE-786155

PATIENT
  Age: 63 Year
  Sex: Male
  Weight: 94.1 kg

DRUGS (4)
  1. MORPHINE [Suspect]
     Active Substance: MORPHINE
     Indication: PRODUCT USED FOR UNKNOWN INDICATION
     Route: 065
  2. BLINDED BEVACIZUMAB [Suspect]
     Active Substance: BEVACIZUMAB
     Indication: TRANSITIONAL CELL CARCINOMA
     Dosage: DOSE: BLINDED, CYCLE 1, DAY 1. LAST DOSE PRIOR TO SAE: 01 JUNE 2011
     Route: 042
     Dates: start: 20110601
  3. CISPLATIN. [Suspect]
     Active Substance: CISPLATIN
     Indication: TRANSITIONAL CELL CARCINOMA
     Dosage: ON DAY 1, CYCLE 1
     Route: 042
     Dates: start: 20110601
  4. GEMCITABINE. [Suspect]
     Active Substance: GEMCITABINE
     Indication: TRANSITIONAL CELL CARCINOMA
     Dosage: OVER 30 MINS ON DAY 1 AND 8 FOR CYCLE 1 - 6; LAST DOSE ON: 08 JUNE 2011
     Route: 042
     Dates: start: 20110601

REACTIONS (8)
  - Gastrointestinal disorder [Recovered/Resolved]
  - Dehydration [Recovered/Resolved]
  - White blood cell count decreased [Unknown]
  - Constipation [Unknown]
  - Ileus [Recovered/Resolved]
  - Cardiac arrest [Fatal]
  - Platelet count decreased [Unknown]
  - Hypophosphataemia [Recovered/Resolved]

NARRATIVE: CASE EVENT DATE: 20110608
